FAERS Safety Report 18485311 (Version 1)
Quarter: 2020Q4

REPORT INFORMATION
  Report Type: Spontaneous
  Country: US (occurrence: US)
  Receive Date: 20201110
  Receipt Date: 20201110
  Transmission Date: 20210114
  Serious: Yes (Hospitalization, Other)
  Sender: FDA-Public Use
  Company Number: US-TARO-2020TAR01676

PATIENT
  Age: 56 Year
  Sex: Male
  Weight: 56.2 kg

DRUGS (26)
  1. WARFARIN [Interacting]
     Active Substance: WARFARIN
     Dosage: 3.5 MILLIGRAM, QD
     Route: 065
     Dates: start: 20070315
  2. WARFARIN [Interacting]
     Active Substance: WARFARIN
     Dosage: 3 MILLIGRAM, QD
     Route: 065
     Dates: start: 20070322
  3. WARFARIN [Interacting]
     Active Substance: WARFARIN
     Dosage: 2.5 MILLIGRAM, QD
     Route: 065
     Dates: start: 20070406
  4. CARBAMAZEPINE. [Concomitant]
     Active Substance: CARBAMAZEPINE
     Indication: PRODUCT USED FOR UNKNOWN INDICATION
     Dosage: 200 MILLIGRAM, DAILY, SUSTAINED ACTION
     Route: 048
  5. OMEPRAZOLE. [Concomitant]
     Active Substance: OMEPRAZOLE
     Indication: PRODUCT USED FOR UNKNOWN INDICATION
     Dosage: 20 MILLIGRAM, DAILY
     Route: 048
  6. CLOPIDOGREL [Concomitant]
     Active Substance: CLOPIDOGREL BISULFATE
     Indication: PRODUCT USED FOR UNKNOWN INDICATION
     Dosage: 75 MILLIGRAM, QD
     Route: 048
  7. WARFARIN [Interacting]
     Active Substance: WARFARIN
     Dosage: 5 MILLIGRAM, DAILY
     Route: 065
     Dates: start: 20070309
  8. WARFARIN [Interacting]
     Active Substance: WARFARIN
     Dosage: 3.5 MILLIGRAM, QD
     Route: 065
     Dates: start: 20070313
  9. POTASSIUM CHLORIDE. [Concomitant]
     Active Substance: POTASSIUM CHLORIDE
     Indication: PRODUCT USED FOR UNKNOWN INDICATION
     Dosage: 20 MILLIEQUIVALENT, DAILY
     Route: 065
  10. ASPIRIN. [Concomitant]
     Active Substance: ASPIRIN
     Indication: PRODUCT USED FOR UNKNOWN INDICATION
     Dosage: 81 MILLIGRAM, DAILY
     Route: 048
  11. WARFARIN [Interacting]
     Active Substance: WARFARIN
     Dosage: 2.5 MILLIGRAM, QD
     Route: 065
     Dates: start: 20070331
  12. WARFARIN [Interacting]
     Active Substance: WARFARIN
     Dosage: 4 MILLIGRAM, QD
     Route: 065
     Dates: start: 20070311
  13. SERTRALINE [Concomitant]
     Active Substance: SERTRALINE HYDROCHLORIDE
     Indication: PRODUCT USED FOR UNKNOWN INDICATION
     Dosage: 50 MILLIGRAM, DAILY
     Route: 048
  14. WARFARIN [Suspect]
     Active Substance: WARFARIN
     Indication: ANTICOAGULANT THERAPY
     Dosage: 4 MILLIGRAM, DAILY
     Route: 065
     Dates: start: 20070201
  15. WARFARIN [Interacting]
     Active Substance: WARFARIN
     Dosage: 3.25 MILLIGRAM, QD
     Dates: start: 20070328
  16. MARIJUANA [Interacting]
     Active Substance: CANNABIS SATIVA SUBSP. INDICA TOP
     Indication: DEPRESSION
     Dosage: (FROM 1-2 JOINTS [0.5-1 G EVERY 2 WK])
     Route: 065
  17. METOPROLOL. [Concomitant]
     Active Substance: METOPROLOL
     Indication: PRODUCT USED FOR UNKNOWN INDICATION
     Dosage: 12.5 MILLIGRAM, BID, DAILY
     Route: 048
  18. WARFARIN [Interacting]
     Active Substance: WARFARIN
     Dosage: 5 MILLIGRAM, DAILY
     Route: 065
     Dates: start: 20070301
  19. WARFARIN [Interacting]
     Active Substance: WARFARIN
     Dosage: 5 MILLIGRAM, DAILY
     Route: 065
     Dates: start: 20070306
  20. WARFARIN [Interacting]
     Active Substance: WARFARIN
     Dosage: 5 MILLIGRAM, QD
     Route: 065
     Dates: start: 20070308
  21. WARFARIN [Interacting]
     Active Substance: WARFARIN
     Dosage: 2.5 MILLIGRAM, QD
     Route: 065
     Dates: start: 20070104
  22. FUROSEMIDE. [Concomitant]
     Active Substance: FUROSEMIDE
     Indication: PRODUCT USED FOR UNKNOWN INDICATION
     Dosage: 40 MILLIGRAM, DAILY
     Route: 048
  23. VALPROIC ACID. [Concomitant]
     Active Substance: VALPROIC ACID
     Indication: PRODUCT USED FOR UNKNOWN INDICATION
     Dosage: 250 MILLIGRAM, BID, DAILY
     Route: 048
  24. WARFARIN [Interacting]
     Active Substance: WARFARIN
     Dosage: 3.5 MILLIGRAM, QD
     Route: 065
     Dates: start: 20070312
  25. MARIJUANA [Interacting]
     Active Substance: CANNABIS SATIVA SUBSP. INDICA TOP
     Dosage: PREVIOUSLY TO 4-5 JOINTS [2.0-2.5 G/WK]
     Route: 065
  26. TRAMADOL. [Concomitant]
     Active Substance: TRAMADOL
     Indication: PAIN
     Dosage: 50 MILLIGRAM, QOD,EVERY 6 HOUR, AS NEEDED
     Route: 048

REACTIONS (4)
  - Drug interaction [Unknown]
  - Haemorrhage [Recovered/Resolved]
  - Syncope [Recovered/Resolved]
  - International normalised ratio increased [Recovered/Resolved]
